FAERS Safety Report 6163612-3 (Version None)
Quarter: 2009Q2

REPORT INFORMATION
  Report Type: 
  Country: None (occurrence: None)
  Receive Date: 20090422
  Receipt Date: 20090323
  Transmission Date: 20091009
  Serious: Yes (Death)
  Sender: FDA-Public Use
  Company Number: JP-ROCHE-628180

PATIENT
  Sex: Male
  Weight: 64.1 kg

DRUGS (4)
  1. PANALDINE [Suspect]
     Indication: MYOCARDIAL INFARCTION
     Route: 048
     Dates: end: 20080725
  2. ERLOTINIB [Suspect]
     Indication: LUNG ADENOCARCINOMA
     Route: 048
     Dates: start: 20080529, end: 20080711
  3. ASPIRIN [Suspect]
     Indication: MYOCARDIAL INFARCTION
     Dosage: FORM: ENTERIC
     Route: 048
     Dates: end: 20080725
  4. AMLODIN [Concomitant]
     Dosage: DRUG NAME: AMLODIN OD
     Route: 048
     Dates: end: 20080101

REACTIONS (3)
  - DISEASE PROGRESSION [None]
  - GASTROINTESTINAL HAEMORRHAGE [None]
  - RASH [None]
